FAERS Safety Report 4994136-4 (Version None)
Quarter: 2006Q2

REPORT INFORMATION
  Report Type: 
  Country: None (occurrence: None)
  Receive Date: 20060503
  Receipt Date: 20060419
  Transmission Date: 20061013
  Serious: Yes (Death, Hospitalization)
  Sender: FDA-Public Use
  Company Number: 2006JP000644

PATIENT
  Age: 26 Year
  Sex: Female
  Weight: 33 kg

DRUGS (5)
  1. PROGRAF [Suspect]
     Indication: BONE MARROW TRANSPLANT
     Dosage: 0.2 MG, CONTINUOUS, IV DRIP
     Route: 041
     Dates: start: 20030622
  2. CELLCEPT [Suspect]
     Indication: BONE MARROW TRANSPLANT
     Dosage: 500 MG, BID, ORAL
     Route: 048
     Dates: start: 20031001
  3. DIFLUCAN [Suspect]
     Indication: FUNGAL INFECTION
     Dosage: 200 MG, CONTINUOUS, IV DRIP; SEE IMAGE
     Route: 041
     Dates: start: 20030924
  4. CEFTAZIDIME [Suspect]
     Indication: SEPSIS
     Dosage: 1 G, BID, IV NOS
     Route: 042
     Dates: start: 20030925
  5. SOLU-MEDROL [Concomitant]

REACTIONS (5)
  - ACUTE RESPIRATORY DISTRESS SYNDROME [None]
  - CARDIAC ARREST [None]
  - CARDIAC FAILURE CONGESTIVE [None]
  - LIVER DISORDER [None]
  - PULMONARY CONGESTION [None]
